FAERS Safety Report 19469351 (Version 3)
Quarter: 2022Q2

REPORT INFORMATION
  Report Type: Report from Study
  Country: FR (occurrence: FR)
  Receive Date: 20210628
  Receipt Date: 20220411
  Transmission Date: 20220721
  Serious: Yes (Other)
  Sender: FDA-Public Use
  Company Number: FR-TAKEDA-FR201738185

PATIENT
  Age: 47 Year
  Sex: Male

DRUGS (54)
  1. TEDUGLUTIDE [Suspect]
     Active Substance: TEDUGLUTIDE
     Indication: Short-bowel syndrome
     Dosage: UNK
     Route: 042
     Dates: start: 20160324
  2. TEDUGLUTIDE [Suspect]
     Active Substance: TEDUGLUTIDE
     Indication: Short-bowel syndrome
     Dosage: UNK
     Route: 042
     Dates: start: 20160324
  3. TEDUGLUTIDE [Suspect]
     Active Substance: TEDUGLUTIDE
     Indication: Short-bowel syndrome
     Dosage: UNK
     Route: 042
     Dates: start: 20160324
  4. TEDUGLUTIDE [Suspect]
     Active Substance: TEDUGLUTIDE
     Indication: Short-bowel syndrome
     Dosage: UNK
     Route: 042
     Dates: start: 20160324
  5. TEDUGLUTIDE [Suspect]
     Active Substance: TEDUGLUTIDE
     Dosage: 3.3 MILLIGRAM, (0.05MG/KG),QD
     Route: 042
     Dates: start: 20160324, end: 20181205
  6. TEDUGLUTIDE [Suspect]
     Active Substance: TEDUGLUTIDE
     Dosage: 3.3 MILLIGRAM, (0.05MG/KG),QD
     Route: 042
     Dates: start: 20160324, end: 20181205
  7. TEDUGLUTIDE [Suspect]
     Active Substance: TEDUGLUTIDE
     Dosage: 3.3 MILLIGRAM, (0.05MG/KG),QD
     Route: 042
     Dates: start: 20160324, end: 20181205
  8. TEDUGLUTIDE [Suspect]
     Active Substance: TEDUGLUTIDE
     Dosage: 3.3 MILLIGRAM, (0.05MG/KG),QD
     Route: 042
     Dates: start: 20160324, end: 20181205
  9. EUPANTOL [Concomitant]
     Active Substance: PANTOPRAZOLE SODIUM
     Indication: Abdominal pain
     Dosage: 40 MILLIGRAM, QD
     Route: 042
     Dates: start: 20190109
  10. EUPANTOL [Concomitant]
     Active Substance: PANTOPRAZOLE SODIUM
     Indication: Short-bowel syndrome
     Dosage: 40 MILLIGRAM, QD
     Route: 042
     Dates: start: 20150720, end: 2016
  11. TIAPRIDE HYDROCHLORIDE [Concomitant]
     Active Substance: TIAPRIDE HYDROCHLORIDE
     Indication: Anxiety
     Dosage: 100 MILLIGRAM
     Route: 042
     Dates: start: 20190109
  12. INNOHEP [Concomitant]
     Active Substance: TINZAPARIN SODIUM
     Indication: Thrombosis
     Dosage: 8000 INTERNATIONAL UNIT, QD
     Route: 058
     Dates: start: 20190109
  13. URSODIOL [Concomitant]
     Active Substance: URSODIOL
     Indication: Liver disorder
     Dosage: 250 MILLIGRAM, QD
     Route: 048
     Dates: start: 20190109
  14. CALCIUM CARBONATE [Concomitant]
     Active Substance: CALCIUM CARBONATE
     Indication: Supplementation therapy
     Dosage: 600 MILLIGRAM, BID
     Route: 048
     Dates: start: 2013, end: 20170324
  15. CALCIUM CARBONATE [Concomitant]
     Active Substance: CALCIUM CARBONATE
     Dosage: 500 MILLIGRAM, QID
     Route: 048
     Dates: start: 20170324, end: 2017
  16. IMODIUM [Concomitant]
     Active Substance: LOPERAMIDE HYDROCHLORIDE
     Indication: Short-bowel syndrome
     Dosage: 8 MILLIGRAM
     Route: 048
     Dates: start: 2013, end: 20161223
  17. IMODIUM [Concomitant]
     Active Substance: LOPERAMIDE HYDROCHLORIDE
     Indication: Short-bowel syndrome
     Dosage: 2 UNK
     Route: 048
     Dates: start: 20161223, end: 201707
  18. IMODIUM [Concomitant]
     Active Substance: LOPERAMIDE HYDROCHLORIDE
     Dosage: 2 MILLIGRAM
     Route: 048
     Dates: start: 201707
  19. LYRICA [Concomitant]
     Active Substance: PREGABALIN
     Indication: Abdominal pain
     Dosage: 50 MILLIGRAM, BID
     Route: 048
  20. LYRICA [Concomitant]
     Active Substance: PREGABALIN
     Dosage: 10 UNK
     Route: 048
     Dates: start: 20180125
  21. SODIUM BICARBONATE [Concomitant]
     Active Substance: SODIUM BICARBONATE
     Indication: Supplementation therapy
     Dosage: 1000 MILLIGRAM, TID
     Route: 048
  22. SODIUM BICARBONATE [Concomitant]
     Active Substance: SODIUM BICARBONATE
     Dosage: 1 MILLIGRAM, BID
     Route: 048
     Dates: start: 20180125
  23. KARDEGIC [Concomitant]
     Active Substance: ASPIRIN DL-LYSINE
     Indication: Gene mutation
     Dosage: 160 MILLIGRAM, QD
     Route: 048
     Dates: start: 2013, end: 201812
  24. KARDEGIC [Concomitant]
     Active Substance: ASPIRIN DL-LYSINE
     Indication: Thrombosis
     Dosage: 75 UNK
     Route: 048
     Dates: start: 20170320, end: 20170324
  25. KARDEGIC [Concomitant]
     Active Substance: ASPIRIN DL-LYSINE
     Dosage: 160 UNK
     Route: 048
     Dates: start: 20180125
  26. BROMAZEPAM [Concomitant]
     Active Substance: BROMAZEPAM
     Indication: Anxiety
     Dosage: 1.50 MILLIGRAM, QD
     Route: 048
  27. CODEINE [Concomitant]
     Active Substance: CODEINE
     Indication: Pain
     Dosage: 1 MILLIGRAM, QID
     Route: 048
  28. ZOLPIDEM TARTRATE [Concomitant]
     Active Substance: ZOLPIDEM TARTRATE
     Indication: Anxiety
     Dosage: 10 MILLIGRAM, QD
     Route: 048
  29. CEFTRIAXONE SODIUM [Concomitant]
     Active Substance: CEFTRIAXONE SODIUM
     Indication: Lung disorder
     Dosage: 1 GRAM, BID
     Route: 042
     Dates: start: 20130709, end: 20130717
  30. FLAGYL [Concomitant]
     Active Substance: METRONIDAZOLE\METRONIDAZOLE HYDROCHLORIDE
     Indication: Lung disorder
     Dosage: 500 MILLIGRAM, TID
     Route: 048
     Dates: start: 20130709, end: 20130723
  31. LOSARTAN POTASSIUM [Concomitant]
     Active Substance: LOSARTAN POTASSIUM
     Indication: Blood pressure increased
     Dosage: 5 MILLIGRAM, QD
     Route: 048
     Dates: start: 2016, end: 201702
  32. PRISTINAMYCIN [Concomitant]
     Active Substance: PRISTINAMYCIN
     Indication: Wound
     Dosage: 500 MILLIGRAM, QID
     Route: 048
     Dates: start: 201309, end: 201309
  33. WARFARIN SODIUM [Concomitant]
     Active Substance: WARFARIN SODIUM
     Indication: Gene mutation
     Dosage: 4 MILLIGRAM
     Route: 048
     Dates: start: 201309, end: 201703
  34. WARFARIN SODIUM [Concomitant]
     Active Substance: WARFARIN SODIUM
     Indication: Thrombosis
     Dosage: 5 MILLIGRAM
     Route: 048
     Dates: start: 201309, end: 20170320
  35. WARFARIN SODIUM [Concomitant]
     Active Substance: WARFARIN SODIUM
     Dosage: 2.50 MILLIGRAM, QD
     Route: 048
     Dates: start: 20170320
  36. WARFARIN SODIUM [Concomitant]
     Active Substance: WARFARIN SODIUM
     Dosage: 2 MILLIGRAM
     Route: 048
     Dates: start: 2017, end: 2018
  37. WARFARIN SODIUM [Concomitant]
     Active Substance: WARFARIN SODIUM
     Dosage: 1 MILLIGRAM, QOD
     Route: 048
     Dates: start: 2017, end: 2017
  38. CHOLECALCIFEROL [Concomitant]
     Active Substance: CHOLECALCIFEROL
     Indication: Supplementation therapy
     Dosage: 80000 INTERNATIONAL UNIT
     Route: 048
     Dates: start: 20150605
  39. TAHOR [Concomitant]
     Active Substance: ATORVASTATIN CALCIUM
     Indication: Dyslipidaemia
     Dosage: 10 MILLIGRAM, QD
     Route: 048
     Dates: start: 201507, end: 2016
  40. PYRIDOXINE [Concomitant]
     Active Substance: PYRIDOXINE
     Indication: Supplementation therapy
     Dosage: 250 MILLIGRAM, QD
     Route: 048
     Dates: start: 20150801
  41. OXAZEPAM [Concomitant]
     Active Substance: OXAZEPAM
     Indication: Anxiety
     Dosage: 10 MILLIGRAM, TID
     Route: 048
     Dates: start: 20150801
  42. MAGNESIUM [Concomitant]
     Active Substance: MAGNESIUM
     Indication: Supplementation therapy
     Dosage: 2 UNK, QD
     Route: 048
     Dates: start: 20160617
  43. MAGNESIUM [Concomitant]
     Active Substance: MAGNESIUM
     Dosage: 1 UNK, TID
     Route: 048
     Dates: start: 20170324
  44. VITAMIN B12 [Concomitant]
     Active Substance: CYANOCOBALAMIN
     Indication: Supplementation therapy
     Dosage: 1000 MICROGRAM, 1/WEEK
     Route: 048
     Dates: start: 20160617
  45. LANSOPRAZOLE [Concomitant]
     Active Substance: LANSOPRAZOLE
     Indication: Dysphagia
     Dosage: 30 MILLIGRAM, QD
     Route: 048
     Dates: start: 20160812
  46. QUESTRAN [Concomitant]
     Active Substance: CHOLESTYRAMINE
     Dosage: 1 UNK
     Route: 061
  47. Mitosyl [Concomitant]
     Dosage: 1 UNK
     Route: 061
     Dates: start: 20171013
  48. CHOLECALCIFEROL [Concomitant]
     Active Substance: CHOLECALCIFEROL
     Indication: Thrombosis
     Dosage: 8000 INTERNATIONAL UNIT
     Route: 048
     Dates: start: 20180125
  49. LANSOPRAZOLE [Concomitant]
     Active Substance: LANSOPRAZOLE
     Indication: Thrombosis
     Dosage: 30 MILLIGRAM, QD
     Route: 048
     Dates: start: 20180125
  50. ACETAMINOPHEN [Concomitant]
     Active Substance: ACETAMINOPHEN
     Indication: Pain
     Dosage: 500 MILLIGRAM
     Route: 048
     Dates: start: 20180125
  51. ZINC GLUCONATE [Concomitant]
     Active Substance: ZINC GLUCONATE
     Indication: Supplementation therapy
     Dosage: 15 MILLIGRAM, BID
     Route: 048
     Dates: start: 20180125
  52. SODIUM BICARBONATE [Concomitant]
     Active Substance: SODIUM BICARBONATE
     Indication: Abdominal pain
     Dosage: 10 MILLILITER, TID
     Route: 048
     Dates: start: 20181224
  53. MIRTAZAPINE [Concomitant]
     Active Substance: MIRTAZAPINE
     Indication: Depression
     Dosage: 15 MILLIGRAM, QD
     Route: 048
     Dates: start: 20190109
  54. LACTULOSE [Concomitant]
     Active Substance: LACTULOSE
     Indication: Hepatic encephalopathy
     Dosage: 10 MILLIGRAM, TID
     Route: 048
     Dates: start: 20190109

REACTIONS (2)
  - Hyperleukocytosis [Recovered/Resolved]
  - Dysphagia [Recovered/Resolved]

NARRATIVE: CASE EVENT DATE: 20160617
